FAERS Safety Report 8478768 (Version 8)
Quarter: 2013Q1

REPORT INFORMATION
  Report Type: Spontaneous
  Country: CA (occurrence: CA)
  Receive Date: 20120327
  Receipt Date: 20130327
  Transmission Date: 20140127
  Serious: Yes (Hospitalization, Other)
  Sender: FDA-Public Use
  Company Number: CA-B.I. PHARMACEUTICALS,INC./RIDGEFIELD-2012-CN-00587CN

PATIENT
  Sex: Male

DRUGS (24)
  1. MIRAPEX [Suspect]
     Indication: RESTLESS LEGS SYNDROME
     Route: 048
     Dates: start: 2003, end: 20120504
  2. NICOTINE PATCH [Concomitant]
  3. NICOTINE PATCH [Concomitant]
  4. NITROLINGUAL [Concomitant]
  5. ASAPHEN (ECASA) [Concomitant]
     Dosage: 81 MG
     Route: 048
  6. PLAVIX [Concomitant]
     Dosage: 75 MG
     Route: 048
  7. LOPRESSOR [Concomitant]
     Dosage: 25 MG
     Route: 048
  8. ALTACE [Concomitant]
     Dosage: 2.5 MG
     Route: 048
  9. LIPITOR [Concomitant]
     Dosage: 40 MG
     Route: 048
  10. GLUCOPHAGE [Concomitant]
     Dosage: 1500 MG
     Route: 048
  11. LOSEC [Concomitant]
     Dosage: 20 MG
     Route: 048
  12. LASIX [Concomitant]
     Dosage: 20 MG
     Route: 048
  13. WELLBUTRIN SR [Concomitant]
     Dosage: 150 MG
     Route: 048
  14. CLONAZEPAM [Concomitant]
     Dosage: 2 MG
     Route: 048
  15. APO-PANTOPRAZOLE [Concomitant]
     Indication: DYSPEPSIA
     Dosage: 40 MG
  16. PAROXETINE [Concomitant]
  17. PAROXETINE [Concomitant]
  18. PAXIL [Concomitant]
     Dosage: 1/2 TABLET ONCE A DAY
  19. NORVASC [Concomitant]
     Dosage: 2.5 NR
  20. MONITAN [Concomitant]
     Dosage: 100 NR
  21. QUININE [Concomitant]
  22. SECTRAL [Concomitant]
  23. ATIVAN [Concomitant]
  24. TEMAZEPAM [Concomitant]

REACTIONS (46)
  - Suicide attempt [Unknown]
  - Deep vein thrombosis [Unknown]
  - Acute coronary syndrome [Unknown]
  - Chest pain [Unknown]
  - Depression [Unknown]
  - Tremor [Unknown]
  - Crying [Unknown]
  - Compulsive shopping [Not Recovered/Not Resolved]
  - Constipation [Unknown]
  - Libido decreased [Unknown]
  - Dizziness [Unknown]
  - Balance disorder [Unknown]
  - Dry mouth [Unknown]
  - Dyspepsia [Unknown]
  - Hyperhidrosis [Unknown]
  - Thinking abnormal [Unknown]
  - Blood pressure decreased [Unknown]
  - Somnolence [Unknown]
  - Arthralgia [Unknown]
  - Paranoia [Unknown]
  - Sleep disorder [Unknown]
  - Abnormal behaviour [Unknown]
  - Suicidal ideation [Unknown]
  - Attention-seeking behaviour [Unknown]
  - Abnormal behaviour [Unknown]
  - Economic problem [Unknown]
  - Bankruptcy [Unknown]
  - Sudden onset of sleep [Recovered/Resolved]
  - Self esteem decreased [Unknown]
  - Divorced [Unknown]
  - Partner stress [Unknown]
  - Aggression [Unknown]
  - Mental disorder [Unknown]
  - Obsessive-compulsive personality disorder [Unknown]
  - Gambling [Unknown]
  - Asthenia [Unknown]
  - Disturbance in attention [Unknown]
  - Alcoholic [Unknown]
  - Weight decreased [Unknown]
  - Poverty [Unknown]
  - Obsessive-compulsive personality disorder [Unknown]
  - Anxiety [Unknown]
  - Pain in extremity [Unknown]
  - Muscle spasms [Unknown]
  - Middle insomnia [Unknown]
  - Fatigue [Unknown]
